FAERS Safety Report 5357010-X (Version None)
Quarter: 2007Q2

REPORT INFORMATION
  Report Type: 
  Country: None (occurrence: None)
  Receive Date: 20070612
  Receipt Date: 20070612
  Transmission Date: 20071010
  Serious: Yes (Other)
  Sender: FDA-Public Use
  Company Number: None

PATIENT
  Age: 52 Year
  Sex: Female
  Weight: 80.7403 kg

DRUGS (2)
  1. FEMARA [Suspect]
     Indication: BREAST DISORDER
     Dosage: 2.5 MG DAILY PO
     Route: 048
     Dates: start: 20070321, end: 20070611
  2. TARCEVA [Suspect]
     Indication: BREAST DISORDER
     Dosage: 150 MG DAILY PO
     Route: 048
     Dates: start: 20070321, end: 20070611

REACTIONS (2)
  - RIB FRACTURE [None]
  - ROAD TRAFFIC ACCIDENT [None]
